FAERS Safety Report 8197321-6 (Version None)
Quarter: 2012Q1

REPORT INFORMATION
  Report Type: 
  Country: None (occurrence: None)
  Receive Date: 20120309
  Receipt Date: 20120229
  Transmission Date: 20120608
  Serious: Yes (Other)
  Sender: FDA-Public Use
  Company Number: US-SANOFI-AVENTIS-2012SA013914

PATIENT
  Age: 62 Year
  Sex: Female

DRUGS (11)
  1. PLAVIX [Suspect]
     Indication: STENT PLACEMENT
     Route: 048
     Dates: start: 20080101
  2. VALSARTAN [Concomitant]
  3. ATORVASTATIN [Concomitant]
  4. RANITIDINE [Concomitant]
  5. ASPIRIN [Suspect]
  6. CELEXA [Concomitant]
  7. PLAVIX [Suspect]
     Route: 048
     Dates: start: 20100801
  8. PLAVIX [Suspect]
     Route: 048
     Dates: start: 20100801
  9. PLAVIX [Suspect]
     Route: 048
     Dates: start: 20080101
  10. GLIMEPIRIDE [Concomitant]
  11. KEPPRA [Concomitant]

REACTIONS (6)
  - CONTUSION [None]
  - ARTERIAL OCCLUSIVE DISEASE [None]
  - STENT MALFUNCTION [None]
  - SLEEP DISORDER [None]
  - CONFUSIONAL STATE [None]
  - HAEMORRHAGE [None]
